FAERS Safety Report 20327984 (Version 1)
Quarter: 2022Q1

REPORT INFORMATION
  Report Type: Spontaneous
  Country: US (occurrence: None)
  Receive Date: 20220112
  Receipt Date: 20220112
  Transmission Date: 20220424
  Serious: Yes (Hospitalization)
  Sender: FDA-Public Use
  Company Number: None

PATIENT
  Sex: Male

DRUGS (1)
  1. LUMAKRAS [Suspect]
     Active Substance: SOTORASIB
     Indication: Lung neoplasm
     Dosage: FREQUENCY : DAILY;?
     Route: 048
     Dates: start: 20211214

REACTIONS (2)
  - Pericardial effusion [None]
  - Pulmonary oedema [None]

NARRATIVE: CASE EVENT DATE: 20211220
